FAERS Safety Report 8475528-8 (Version None)
Quarter: 2012Q2

REPORT INFORMATION
  Report Type: 
  Country: None (occurrence: None)
  Receive Date: 20120628
  Receipt Date: 20120620
  Transmission Date: 20120825
  Serious: Yes (Hospitalization)
  Sender: FDA-Public Use
  Company Number: US-JNJFOC-20120600221

PATIENT
  Sex: Female
  Weight: 42.55 kg

DRUGS (8)
  1. REMICADE [Suspect]
     Indication: COLITIS ULCERATIVE
     Route: 042
     Dates: start: 20120501
  2. REMICADE [Suspect]
     Route: 042
     Dates: start: 20120514
  3. ACETAMINOPHEN [Concomitant]
  4. RIFAXIMIN [Concomitant]
     Indication: INFLAMMATORY BOWEL DISEASE
  5. PENTASA [Concomitant]
     Route: 048
  6. CORTIFOAM [Concomitant]
  7. ANTIBIOTICS [Concomitant]
     Indication: INFLAMMATORY BOWEL DISEASE
  8. PREDNISONE TAB [Concomitant]

REACTIONS (1)
  - COLITIS ULCERATIVE [None]
